FAERS Safety Report 8395637-1 (Version None)
Quarter: 2012Q2

REPORT INFORMATION
  Report Type: 
  Country: None (occurrence: None)
  Receive Date: 20120530
  Receipt Date: 20111227
  Transmission Date: 20120825
  Serious: No
  Sender: FDA-Public Use
  Company Number: US-GLAXOSMITHKLINE-A0959233A

PATIENT
  Age: 69 Year
  Sex: Male

DRUGS (5)
  1. PULMICORT [Concomitant]
  2. COMBIVENT [Concomitant]
  3. VENTOLIN [Suspect]
     Indication: EMPHYSEMA
     Dosage: 2PUFF SIX TIMES PER DAY
     Route: 055
     Dates: start: 20100104
  4. METHADONE [Concomitant]
  5. XANAX [Concomitant]

REACTIONS (2)
  - PRODUCT QUALITY ISSUE [None]
  - DYSPNOEA [None]
